FAERS Safety Report 5937931-7 (Version None)
Quarter: 2008Q4

REPORT INFORMATION
  Report Type: 
  Country: None (occurrence: None)
  Receive Date: 20081031
  Receipt Date: 20081021
  Transmission Date: 20090506
  Serious: Yes (Hospitalization)
  Sender: FDA-Public Use
  Company Number: US-JNJFOC-20081004549

PATIENT
  Sex: Female

DRUGS (17)
  1. DURAGESIC-100 [Suspect]
     Route: 062
  2. DURAGESIC-100 [Suspect]
     Route: 062
  3. DURAGESIC-100 [Suspect]
     Indication: PAIN
     Route: 062
  4. PERCOCET [Suspect]
     Indication: PAIN
     Route: 048
  5. VALIUM [Suspect]
  6. VALIUM [Suspect]
     Indication: DRUG USE FOR UNKNOWN INDICATION
  7. MORPHINE [Suspect]
     Indication: PAIN
     Route: 040
  8. NEURONTIN [Concomitant]
  9. ZOLOFT [Concomitant]
  10. SYNTHROID [Concomitant]
  11. PROTONIX [Concomitant]
  12. COLACE [Concomitant]
  13. CALCIUM WITH VITAMIN D [Concomitant]
  14. PREFEST [Concomitant]
     Route: 048
  15. COUMADIN [Concomitant]
  16. BENADRYL [Concomitant]
  17. MORPHINE [Concomitant]

REACTIONS (4)
  - DRUG TOXICITY [None]
  - OVERDOSE [None]
  - PNEUMONIA ASPIRATION [None]
  - SMALL INTESTINAL OBSTRUCTION [None]
